FAERS Safety Report 13167223 (Version 6)
Quarter: 2021Q4

REPORT INFORMATION
  Report Type: Spontaneous
  Country: CA (occurrence: CA)
  Receive Date: 20170131
  Receipt Date: 20211119
  Transmission Date: 20220303
  Serious: Yes (Death, Hospitalization, Other)
  Sender: FDA-Public Use
  Company Number: CA-VIIV HEALTHCARE LIMITED-CA2017GSK012348

PATIENT
  Sex: Male

DRUGS (5)
  1. DOLUTEGRAVIR [Suspect]
     Active Substance: DOLUTEGRAVIR
     Indication: HIV infection
     Dosage: 100 MG, QID
     Route: 048
  2. RITONAVIR\TIPRANAVIR [Suspect]
     Active Substance: RITONAVIR\TIPRANAVIR
     Indication: HIV infection
     Dosage: UNK
     Route: 048
  3. ETRAVIRINE [Suspect]
     Active Substance: ETRAVIRINE
     Indication: HIV infection
     Dosage: 300 MG, QID
     Route: 048
  4. FLUCONAZOLE [Suspect]
     Active Substance: FLUCONAZOLE
     Indication: HIV infection
     Dosage: 200 MG, 1D
     Route: 048
  5. LAMIVUDINE [Suspect]
     Active Substance: LAMIVUDINE
     Indication: HIV infection
     Dosage: 300 MG, 1D
     Route: 048

REACTIONS (12)
  - Death [Fatal]
  - Opportunistic infection [Unknown]
  - Drug resistance [Unknown]
  - Drug interaction [Unknown]
  - Malabsorption [Unknown]
  - Off label use [Unknown]
  - CD4 lymphocytes decreased [Unknown]
  - Gastrointestinal disorder [Unknown]
  - Mycobacterial infection [Unknown]
  - Viraemia [Unknown]
  - Cytomegalovirus chorioretinitis [Unknown]
  - Viral load increased [Unknown]

NARRATIVE: CASE EVENT DATE: 20160101
